FAERS Safety Report 9292308 (Version 2)
Quarter: 2013Q2

REPORT INFORMATION
  Report Type: Report from Study
  Country: US (occurrence: US)
  Receive Date: 20130516
  Receipt Date: 20130523
  Transmission Date: 20140414
  Serious: Yes (Hospitalization, Other)
  Sender: FDA-Public Use
  Company Number: PHEH2013US010478

PATIENT
  Age: 48 Year
  Sex: Female
  Weight: 86.17 kg

DRUGS (5)
  1. GILENYA [Suspect]
     Indication: MULTIPLE SCLEROSIS
     Dosage: 0.5 MG, QD
     Route: 048
     Dates: start: 201205, end: 20121112
  2. PROVIGIL [Concomitant]
     Indication: FATIGUE
     Dosage: UNK
  3. KLONOPIN [Concomitant]
     Indication: TREMOR
  4. BACLOFEN [Concomitant]
     Indication: MUSCLE SPASTICITY
     Dosage: UNK
  5. LYRICA [Concomitant]
     Indication: NEUROPATHY PERIPHERAL
     Dosage: 100 MG, BID

REACTIONS (1)
  - Invasive lobular breast carcinoma [Recovering/Resolving]
